FAERS Safety Report 10460208 (Version 3)
Quarter: 2014Q4

REPORT INFORMATION
  Report Type: Report from Study
  Country: PL (occurrence: PL)
  Receive Date: 20140917
  Receipt Date: 20141017
  Transmission Date: 20150528
  Serious: Yes (Hospitalization)
  Sender: FDA-Public Use
  Company Number: PL-ASTRAZENECA-2014SE67775

PATIENT
  Age: 23945 Day
  Sex: Female

DRUGS (4)
  1. ROSUVASTATIN [Suspect]
     Active Substance: ROSUVASTATIN
     Indication: CORONARY ARTERY DISEASE
     Route: 048
     Dates: start: 2012
  2. METOCARD ZK [Suspect]
     Active Substance: METOPROLOL TARTRATE
     Indication: ANGINA PECTORIS
     Route: 048
     Dates: start: 2012
  3. LORISTA [Suspect]
     Active Substance: LOSARTAN POTASSIUM
     Indication: CORONARY ARTERY DISEASE
     Route: 048
     Dates: start: 2012
  4. AZD6140 CODE NOT BROKEN [Suspect]
     Active Substance: TICAGRELOR
     Indication: PERIPHERAL ARTERIAL OCCLUSIVE DISEASE
     Route: 048
     Dates: start: 20130605

REACTIONS (1)
  - Angina pectoris [Recovered/Resolved]

NARRATIVE: CASE EVENT DATE: 20140822
